FAERS Safety Report 16786144 (Version 1)
Quarter: 2019Q3

REPORT INFORMATION
  Report Type: Spontaneous
  Country: CA (occurrence: CA)
  Receive Date: 20190909
  Receipt Date: 20190909
  Transmission Date: 20191005
  Serious: Yes (Hospitalization)
  Sender: FDA-Public Use
  Company Number: CA-PFIZER INC-2019385923

PATIENT
  Age: 45 Year
  Sex: Male
  Weight: 81.18 kg

DRUGS (3)
  1. ZOPICLONE [Concomitant]
     Active Substance: ZOPICLONE
     Dosage: UNK
     Route: 065
  2. MINOXIDIL. [Suspect]
     Active Substance: MINOXIDIL
     Indication: ALOPECIA
     Dosage: UNK
     Route: 061
  3. ROGAINE [Suspect]
     Active Substance: MINOXIDIL
     Indication: ALOPECIA
     Dosage: 5 ML, 2X/DAY
     Route: 061

REACTIONS (34)
  - Acarodermatitis [Unknown]
  - Blood test abnormal [Unknown]
  - Infection [Unknown]
  - Scar [Unknown]
  - Urinary incontinence [Unknown]
  - Headache [Unknown]
  - Skin infection [Unknown]
  - Alopecia [Unknown]
  - Application site pain [Unknown]
  - Lethargy [Unknown]
  - Neurodermatitis [Unknown]
  - Folliculitis [Unknown]
  - Hypertrichosis [Unknown]
  - Loss of consciousness [Unknown]
  - Application site reaction [Unknown]
  - Application site ulcer [Unknown]
  - Cellulitis [Unknown]
  - Pollakiuria [Unknown]
  - Off label use [Unknown]
  - Application site infection [Unknown]
  - Malaise [Unknown]
  - Nervous system disorder [Unknown]
  - Subcutaneous abscess [Unknown]
  - Burning sensation [Unknown]
  - Ear infection [Unknown]
  - Hair growth abnormal [Unknown]
  - Hair texture abnormal [Unknown]
  - Product residue present [Unknown]
  - Urine analysis abnormal [Unknown]
  - Product use issue [Unknown]
  - Abdominal pain [Unknown]
  - Eczema [Unknown]
  - Swelling [Unknown]
  - Testicular pain [Unknown]
